APPROVED DRUG PRODUCT: SPIRONOLACTONE
Active Ingredient: SPIRONOLACTONE
Strength: 25MG
Dosage Form/Route: TABLET;ORAL
Application: A086898 | Product #002
Applicant: WATSON LABORATORIES INC
Approved: Mar 2, 1982 | RLD: No | RS: No | Type: DISCN